FAERS Safety Report 5730769-5 (Version None)
Quarter: 2008Q2

REPORT INFORMATION
  Report Type: 
  Country: None (occurrence: None)
  Receive Date: 20080502
  Receipt Date: 20080423
  Transmission Date: 20081010
  Serious: Yes (Other)
  Sender: FDA-Public Use
  Company Number: 163-20785-08041728

PATIENT
  Age: 96 Year
  Sex: Female

DRUGS (3)
  1. THALOMID [Suspect]
     Indication: MULTIPLE MYELOMA
     Dosage: 50 MG, 1 IN 1 D, ORAL; 50 MG, 1 IN 1 D, ORAL; 50 MG, 1 IN 1 D, ORAL
     Route: 048
     Dates: start: 20060812, end: 20060901
  2. THALOMID [Suspect]
     Indication: MULTIPLE MYELOMA
     Dosage: 50 MG, 1 IN 1 D, ORAL; 50 MG, 1 IN 1 D, ORAL; 50 MG, 1 IN 1 D, ORAL
     Route: 048
     Dates: start: 20071116, end: 20071201
  3. THALOMID [Suspect]
     Indication: MULTIPLE MYELOMA
     Dosage: 50 MG, 1 IN 1 D, ORAL; 50 MG, 1 IN 1 D, ORAL; 50 MG, 1 IN 1 D, ORAL
     Route: 048
     Dates: start: 20080129, end: 20080201

REACTIONS (4)
  - ASTHENIA [None]
  - CARDIAC DISORDER [None]
  - DIZZINESS [None]
  - VERTIGO [None]
